FAERS Safety Report 14300710 (Version 2)
Quarter: 2018Q1

REPORT INFORMATION
  Report Type: Spontaneous
  Country: IT (occurrence: IT)
  Receive Date: 20171219
  Receipt Date: 20180301
  Transmission Date: 20180509
  Serious: Yes (Hospitalization)
  Sender: FDA-Public Use
  Company Number: PHHY2015IT177423

PATIENT
  Age: 55 Year
  Sex: Female
  Weight: 80 kg

DRUGS (3)
  1. DOCETAXEL. [Suspect]
     Active Substance: DOCETAXEL
     Indication: NON-SMALL CELL LUNG CANCER
     Dosage: 122 MG, CYCLIC
     Route: 041
     Dates: start: 20150928
  2. BIBF 1120 [Suspect]
     Active Substance: NINTEDANIB
     Dosage: 400 MG, UNK
     Route: 048
     Dates: start: 20151013, end: 20151018
  3. BIBF 1120 [Suspect]
     Active Substance: NINTEDANIB
     Indication: NON-SMALL CELL LUNG CANCER STAGE IV
     Dosage: 400 MG, QD
     Route: 048
     Dates: start: 20150929, end: 20151007

REACTIONS (7)
  - Aspartate aminotransferase increased [Recovered/Resolved]
  - Aspartate aminotransferase increased [Recovering/Resolving]
  - Diarrhoea [Recovered/Resolved]
  - Neutropenia [Recovered/Resolved]
  - Alanine aminotransferase increased [Recovered/Resolved]
  - Neutropenia [Recovering/Resolving]
  - Alanine aminotransferase increased [Recovering/Resolving]

NARRATIVE: CASE EVENT DATE: 20150929
